FAERS Safety Report 18103532 (Version 1)
Quarter: 2020Q3

REPORT INFORMATION
  Report Type: Report from Study
  Country: GT (occurrence: GT)
  Receive Date: 20200803
  Receipt Date: 20200803
  Transmission Date: 20201103
  Serious: Yes (Other)
  Sender: FDA-Public Use
  Company Number: NVSC2020GT215314

PATIENT
  Age: 61 Year
  Sex: Female

DRUGS (1)
  1. VYMADA [Suspect]
     Active Substance: SACUBITRIL\VALSARTAN
     Indication: PRODUCT USED FOR UNKNOWN INDICATION
     Dosage: 200 MG (STARTED 3 YEAR AGO)
     Route: 065

REACTIONS (3)
  - Oxygen consumption decreased [Unknown]
  - Malaise [Unknown]
  - Cardiac disorder [Unknown]
